FAERS Safety Report 23347457 (Version 1)
Quarter: 2023Q4

REPORT INFORMATION
  Report Type: Spontaneous
  Country: FR (occurrence: None)
  Receive Date: 20231228
  Receipt Date: 20231228
  Transmission Date: 20240110
  Serious: Yes (Other)
  Sender: FDA-Public Use
  Company Number: 2023A283222

PATIENT
  Age: 3 Day
  Sex: Female
  Weight: 3 kg

DRUGS (2)
  1. BEYFORTUS [Suspect]
     Active Substance: NIRSEVIMAB-ALIP
     Indication: Respiratory syncytial virus infection
     Dosage: UNK
     Route: 030
     Dates: start: 20231204, end: 20231204
  2. BEYFORTUS [Suspect]
     Active Substance: NIRSEVIMAB-ALIP
     Indication: Respiratory syncytial virus infection
     Dosage: UNK
     Route: 030
     Dates: start: 20231204, end: 20231204

REACTIONS (3)
  - Haematemesis [Unknown]
  - Extra dose administered [Unknown]
  - Product prescribing error [Unknown]

NARRATIVE: CASE EVENT DATE: 20231204
